FAERS Safety Report 13861287 (Version 1)
Quarter: 2017Q3

REPORT INFORMATION
  Report Type: Spontaneous
  Country: US (occurrence: US)
  Receive Date: 20170811
  Receipt Date: 20170811
  Transmission Date: 20171127
  Serious: No
  Sender: FDA-Public Use
  Company Number: US-PERRIGO-17US001665

PATIENT
  Age: 38 Year
  Sex: Female
  Weight: 72.56 kg

DRUGS (7)
  1. PROMETHAZINE HYDROCHLORIDE. [Suspect]
     Active Substance: PROMETHAZINE HYDROCHLORIDE
     Dosage: 12.5 MG, TID (EVERY 6 HOURS)
     Route: 054
     Dates: start: 20170227
  2. CRANBERRY                          /01512301/ [Concomitant]
     Active Substance: CRANBERRY
     Indication: PROPHYLAXIS URINARY TRACT INFECTION
     Dosage: UNK
     Route: 065
     Dates: start: 201701
  3. PROMETHAZINE HYDROCHLORIDE. [Suspect]
     Active Substance: PROMETHAZINE HYDROCHLORIDE
     Indication: VOMITING IN PREGNANCY
     Dosage: 12.5 MG, TID (EVERY 6 HOURS)
     Route: 054
     Dates: start: 201701, end: 20170203
  4. PRENATAL VITAMINS                  /07499601/ [Concomitant]
     Active Substance: VITAMINS
     Indication: PREGNANCY
     Dosage: UNK
     Route: 065
     Dates: start: 201604
  5. PROMETHAZINE HYDROCHLORIDE. [Suspect]
     Active Substance: PROMETHAZINE HYDROCHLORIDE
     Dosage: PIECES OF A SUPPOSITORY, TID (EVERY 6 HOURS)
     Route: 054
     Dates: start: 20170204, end: 20170218
  6. PROMETHAZINE HYDROCHLORIDE. [Suspect]
     Active Substance: PROMETHAZINE HYDROCHLORIDE
     Dosage: PIECES OF A SUPPOSITORY, TID (EVERY 6 HOURS)
     Route: 054
     Dates: start: 20170221, end: 20170223
  7. LABETALOL [Concomitant]
     Active Substance: LABETALOL\LABETALOL HYDROCHLORIDE
     Indication: HYPERTENSION
     Dosage: UNK
     Route: 065
     Dates: start: 201609

REACTIONS (2)
  - Wrong technique in product usage process [Recovered/Resolved]
  - Exposure during pregnancy [Not Recovered/Not Resolved]

NARRATIVE: CASE EVENT DATE: 201701
